FAERS Safety Report 24229867 (Version 1)
Quarter: 2024Q3

REPORT INFORMATION
  Report Type: Spontaneous
  Country: US (occurrence: None)
  Receive Date: 20240820
  Receipt Date: 20240820
  Transmission Date: 20241017
  Serious: No
  Sender: Public
  Company Number: None

PATIENT
  Sex: Female

DRUGS (5)
  1. AMBRISENTAN [Suspect]
     Active Substance: AMBRISENTAN
     Indication: Pulmonary arterial hypertension
     Dosage: 10MG QD ORAL
     Route: 048
     Dates: start: 201908
  2. DEVICE [Concomitant]
     Active Substance: DEVICE
  3. VELETRI [Concomitant]
     Active Substance: EPOPROSTENOL
  4. TADALAFIL [Concomitant]
     Active Substance: TADALAFIL
  5. WINREVAIR [Concomitant]
     Active Substance: SOTATERCEPT-CSRK

REACTIONS (3)
  - Rash [None]
  - Rash macular [None]
  - Fear of injection [None]
